FAERS Safety Report 7657751-5 (Version None)
Quarter: 2011Q3

REPORT INFORMATION
  Report Type: 
  Country: None (occurrence: None)
  Receive Date: 20110804
  Receipt Date: 20110705
  Transmission Date: 20111222
  Serious: No
  Sender: FDA-Public Use
  Company Number: US-BAYER-2011-059797

PATIENT
  Age: 80 Year
  Sex: Female
  Weight: 91 kg

DRUGS (4)
  1. ALEVE (CAPLET) [Suspect]
     Indication: ANALGESIC THERAPY
     Dosage: 1 DF, BID
     Route: 048
  2. METFORMIN HCL [Concomitant]
  3. ISOSORBIDE DINITRATE [Concomitant]
  4. ATENOLOL [Suspect]

REACTIONS (1)
  - ANALGESIC THERAPY [None]
